FAERS Safety Report 25967674 (Version 1)
Quarter: 2025Q4

REPORT INFORMATION
  Report Type: Spontaneous
  Country: US (occurrence: US)
  Receive Date: 20251028
  Receipt Date: 20251028
  Transmission Date: 20260117
  Serious: No
  Sender: SUNOVION
  Company Number: US-SMPA-2025SPA012972

PATIENT
  Age: 65 Year
  Sex: Male

DRUGS (1)
  1. ORGOVYX [Suspect]
     Active Substance: RELUGOLIX
     Indication: Product used for unknown indication
     Dosage: UNK
     Route: 048

REACTIONS (9)
  - Dyspnoea exertional [Unknown]
  - Testicular pain [Unknown]
  - Testicular atrophy [Unknown]
  - Brain fog [Unknown]
  - Alopecia [Unknown]
  - Loss of libido [Unknown]
  - Hot flush [Recovering/Resolving]
  - Fatigue [Unknown]
  - Insomnia [Not Recovered/Not Resolved]
